FAERS Safety Report 9635313 (Version 2)
Quarter: 2013Q4

REPORT INFORMATION
  Report Type: Spontaneous
  Country: US (occurrence: US)
  Receive Date: 20131021
  Receipt Date: 20131021
  Transmission Date: 20140711
  Serious: No
  Sender: FDA-Public Use
  Company Number: US-PURDUE-USA-2013-0101834

PATIENT
  Age: 33 Year
  Sex: Female
  Weight: 115.65 kg

DRUGS (1)
  1. BUTRANS [Suspect]
     Indication: PAIN
     Dosage: 20 MCG/HR, UNK
     Route: 062
     Dates: start: 20130108, end: 20130430

REACTIONS (3)
  - Drug administered at inappropriate site [Recovered/Resolved]
  - Application site burn [Unknown]
  - Application site irritation [Recovered/Resolved]
